FAERS Safety Report 10145090 (Version 3)
Quarter: 2014Q2

REPORT INFORMATION
  Report Type: Report from Study
  Country: US (occurrence: US)
  Receive Date: 20140501
  Receipt Date: 20140620
  Transmission Date: 20141212
  Serious: Yes (Other)
  Sender: FDA-Public Use
  Company Number: US-BIOGENIDEC-2014BI039214

PATIENT
  Age: 75 Year
  Sex: Female

DRUGS (8)
  1. AVONEX [Suspect]
     Indication: MULTIPLE SCLEROSIS
     Route: 030
     Dates: start: 20030923
  2. AVONEX [Suspect]
     Indication: MULTIPLE SCLEROSIS
     Route: 030
     Dates: start: 20140211
  3. VITAMIN C [Concomitant]
  4. VITAMIN E [Concomitant]
  5. CALCIUM [Concomitant]
  6. ECOTRIN [Concomitant]
  7. DONEPEZIL [Concomitant]
     Route: 048
  8. PROLIA [Concomitant]
     Route: 058

REACTIONS (2)
  - Breast cancer stage I [Not Recovered/Not Resolved]
  - Alopecia [Recovered/Resolved]
